FAERS Safety Report 8492663-9 (Version None)
Quarter: 2012Q3

REPORT INFORMATION
  Report Type: 
  Country: None (occurrence: None)
  Receive Date: 20120706
  Receipt Date: 20120628
  Transmission Date: 20120928
  Serious: No
  Sender: FDA-Public Use
  Company Number: US-B.I. PHARMACEUTICALS,INC./RIDGEFIELD-2012-BP-14695BP

PATIENT
  Sex: Female

DRUGS (3)
  1. SPIRIVA [Suspect]
     Route: 048
  2. ADVAIR DISKUS 100/50 [Concomitant]
     Indication: DYSPNOEA
     Dates: start: 20080101
  3. SPIRIVA [Suspect]
     Indication: CHRONIC OBSTRUCTIVE PULMONARY DISEASE
     Dosage: 18 MCG
     Route: 055
     Dates: start: 20080101

REACTIONS (3)
  - GASTRIC ULCER [None]
  - INCORRECT ROUTE OF DRUG ADMINISTRATION [None]
  - NEUROPATHY PERIPHERAL [None]
